FAERS Safety Report 9289034 (Version 3)
Quarter: 2013Q3

REPORT INFORMATION
  Report Type: Spontaneous
  Country: US (occurrence: US)
  Receive Date: 20130514
  Receipt Date: 20130823
  Transmission Date: 20140515
  Serious: No
  Sender: FDA-Public Use
  Company Number: US-PFIZER INC-2013146836

PATIENT
  Age: 81 Year
  Sex: Male
  Weight: 72.56 kg

DRUGS (4)
  1. FLECTOR [Suspect]
     Indication: MUSCLE RUPTURE
     Dosage: 1 DF, 2X/DAY
     Dates: start: 20130413, end: 20130415
  2. FLECTOR [Suspect]
     Indication: PAIN
     Dosage: UNK
  3. LIPITOR [Concomitant]
     Indication: BLOOD CHOLESTEROL INCREASED
     Dosage: 40 MG, 1X/DAY
  4. ZETIA [Concomitant]
     Indication: BLOOD CHOLESTEROL INCREASED
     Dosage: 10 MG, 1X/DAY
     Route: 048

REACTIONS (3)
  - Application site haemorrhage [Recovered/Resolved]
  - Skin irritation [Recovered/Resolved]
  - Drug ineffective [Unknown]
